FAERS Safety Report 19239911 (Version 1)
Quarter: 2021Q2

REPORT INFORMATION
  Report Type: Spontaneous
  Country: US (occurrence: US)
  Receive Date: 20210510
  Receipt Date: 20210510
  Transmission Date: 20210717
  Serious: Yes (Other)
  Sender: FDA-Public Use
  Company Number: US-ORGANON-O2105USA000618

PATIENT
  Age: 68 Year
  Sex: Female
  Weight: 47.2 kg

DRUGS (5)
  1. BOTOX [Suspect]
     Active Substance: ONABOTULINUMTOXINA
     Indication: SKIN WRINKLING
     Dosage: 51 UNITS, SINGLE, AROUND CROW^S FEET, AND FOREHEAD
     Dates: start: 20210408, end: 20210408
  2. BOTOX [Suspect]
     Active Substance: ONABOTULINUMTOXINA
     Dosage: 51 UNITS, SINGLE, AROUND CROW^S FEET, AND FOREHEAD
     Dates: start: 20210408, end: 20210408
  3. JUVEDERM [Concomitant]
     Active Substance: HYALURONIC ACID
     Dosage: UNK
     Dates: start: 2016
  4. PROLIA [Suspect]
     Active Substance: DENOSUMAB
     Indication: OSTEOPOROSIS
     Dosage: SINGLE, SHOT
     Dates: start: 20210426, end: 20210426
  5. COZAAR [Suspect]
     Active Substance: LOSARTAN POTASSIUM
     Indication: HYPERTENSION
     Dosage: 25 MILLIGRAM, BID
     Route: 048
     Dates: start: 20210426, end: 202104

REACTIONS (5)
  - Feeling abnormal [Unknown]
  - Hot flush [Recovered/Resolved]
  - Heart rate increased [Not Recovered/Not Resolved]
  - Hypertension [Not Recovered/Not Resolved]
  - Condition aggravated [Not Recovered/Not Resolved]

NARRATIVE: CASE EVENT DATE: 202104
